FAERS Safety Report 7992109-0 (Version None)
Quarter: 2011Q4

REPORT INFORMATION
  Report Type: 
  Country: None (occurrence: None)
  Receive Date: 20111219
  Receipt Date: 20101126
  Transmission Date: 20120403
  Serious: No
  Sender: FDA-Public Use
  Company Number: US-ASTRAZENECA-2010SE56593

PATIENT
  Age: 78 Year
  Sex: Female
  Weight: 59 kg

DRUGS (8)
  1. ASTELIN [Concomitant]
     Indication: MULTIPLE ALLERGIES
  2. SULINDAC [Concomitant]
     Indication: BACK PAIN
  3. DILTIAZEM HCL [Concomitant]
     Indication: TACHYCARDIA
  4. SULINDAC [Concomitant]
     Indication: PAIN IN EXTREMITY
  5. METOPROLOL [Concomitant]
     Indication: TACHYCARDIA
  6. SULINDAC [Concomitant]
     Indication: ARTHRALGIA
  7. CRESTOR [Suspect]
     Indication: LOW DENSITY LIPOPROTEIN INCREASED
     Dosage: DAILY
     Route: 048
     Dates: start: 20101123, end: 20101125
  8. ELISTAT [Concomitant]
     Indication: HYPERSENSITIVITY

REACTIONS (6)
  - DECREASED APPETITE [None]
  - FAECES DISCOLOURED [None]
  - DIZZINESS [None]
  - DRUG DOSE OMISSION [None]
  - HOT FLUSH [None]
  - ASTHENIA [None]
